FAERS Safety Report 7228152-9 (Version None)
Quarter: 2011Q1

REPORT INFORMATION
  Report Type: 
  Country: None (occurrence: None)
  Receive Date: 20110106
  Receipt Date: 20101221
  Transmission Date: 20110831
  Serious: Yes (Hospitalization)
  Sender: FDA-Public Use
  Company Number: ALK_01536_2011

PATIENT
  Sex: Male
  Weight: 61.2356 kg

DRUGS (6)
  1. PROZAC [Concomitant]
  2. LISINOPRIL [Concomitant]
  3. TRAZODONE HCL [Concomitant]
  4. VIVITROL [Suspect]
     Indication: ALCOHOLISM
     Dosage: 380 MG 1X/MONTH IM
     Route: 030
     Dates: start: 20100820
  5. PROPRANOLOL [Concomitant]
  6. LIPITOR [Concomitant]

REACTIONS (7)
  - DISORIENTATION [None]
  - INSOMNIA [None]
  - ABNORMAL BEHAVIOUR [None]
  - CONFUSIONAL STATE [None]
  - PSYCHOTIC DISORDER [None]
  - DECREASED APPETITE [None]
  - HALLUCINATION [None]
